FAERS Safety Report 5644403-6 (Version None)
Quarter: 2008Q1

REPORT INFORMATION
  Report Type: 
  Country: None (occurrence: None)
  Receive Date: 20080227
  Receipt Date: 20080221
  Transmission Date: 20080703
  Serious: Yes (Death, Hospitalization)
  Sender: FDA-Public Use
  Company Number: CLOF-1000050

PATIENT
  Age: 70 Year
  Sex: Male
  Weight: 82 kg

DRUGS (11)
  1. CLOFARABINE (CLOFARABINE) CAPSULE [Suspect]
     Indication: ACUTE LEUKAEMIA
     Dosage: 35 MG, QDX5, ORAL
     Route: 048
     Dates: start: 20080107, end: 20080111
  2. LEVAQUIN [Concomitant]
  3. DIFLUCAN [Concomitant]
  4. METFORMIN HCL (METFORMIN HYDROCHLORIDE) [Concomitant]
  5. OMEPRAZOLE [Concomitant]
  6. EXJADE [Concomitant]
  7. METOPROLOL SUCCINATE [Concomitant]
  8. ALPRAZOLAM [Concomitant]
  9. TORSEMIDE (FUROSEMIDE) [Concomitant]
  10. FOSINOPRIL SODIUM [Concomitant]
  11. DEMADEX [Concomitant]

REACTIONS (11)
  - ASCITES [None]
  - BLOOD BILIRUBIN INCREASED [None]
  - CALCINOSIS [None]
  - CHEYNE-STOKES RESPIRATION [None]
  - CHOLELITHIASIS [None]
  - HEPATOMEGALY [None]
  - NEUTROPENIA [None]
  - PANCYTOPENIA [None]
  - PLEURAL EFFUSION [None]
  - RENAL CYST [None]
  - RENAL FAILURE [None]
